FAERS Safety Report 25213728 (Version 3)
Quarter: 2025Q4

REPORT INFORMATION
  Report Type: Report from Study
  Country: JP (occurrence: JP)
  Receive Date: 20250418
  Receipt Date: 20251003
  Transmission Date: 20260118
  Serious: Yes (Death, Life-Threatening, Hospitalization, Disabling)
  Sender: PFIZER
  Company Number: JP-PFIZER INC-PV202500043635

PATIENT
  Age: 75 Year
  Sex: Female

DRUGS (1)
  1. ELRANATAMAB [Suspect]
     Active Substance: ELRANATAMAB
     Indication: Plasma cell myeloma
     Dosage: 76 MG, FOR 3 WEEKS
     Dates: start: 20241112

REACTIONS (2)
  - Interstitial lung disease [Fatal]
  - Cardio-respiratory arrest [Fatal]

NARRATIVE: CASE EVENT DATE: 20250105
